FAERS Safety Report 17787217 (Version 2)
Quarter: 2021Q2

REPORT INFORMATION
  Report Type: Spontaneous
  Country: GR (occurrence: GR)
  Receive Date: 20200514
  Receipt Date: 20210406
  Transmission Date: 20210716
  Serious: Yes (Life-Threatening, Other)
  Sender: FDA-Public Use
  Company Number: GR-PFIZER INC-2020191311

PATIENT
  Age: 75 Year
  Sex: Female

DRUGS (12)
  1. VINCRISTINE [Suspect]
     Active Substance: VINCRISTINE
     Indication: CASTLEMAN^S DISEASE
     Dosage: UNK (4 CYCLES, REPEATED EVERY 21 DAYS)
  2. VINCRISTINE [Suspect]
     Active Substance: VINCRISTINE
     Indication: KAPOSI^S SARCOMA
  3. PREDNISONE. [Suspect]
     Active Substance: PREDNISONE
     Indication: KAPOSI^S SARCOMA
  4. RITUXIMAB. [Suspect]
     Active Substance: RITUXIMAB
     Indication: KAPOSI^S SARCOMA
  5. PREDNISONE. [Suspect]
     Active Substance: PREDNISONE
     Indication: CASTLEMAN^S DISEASE
     Dosage: UNK (4 CYCLES, REPEATED EVERY 21 DAYS)
  6. CYCLOPHOSPHAMIDE. [Suspect]
     Active Substance: CYCLOPHOSPHAMIDE
     Indication: CASTLEMAN^S DISEASE
  7. DOXORUBICIN HCL [Suspect]
     Active Substance: DOXORUBICIN HYDROCHLORIDE
     Indication: CASTLEMAN^S DISEASE
  8. VALGANCICLOVIR. [Concomitant]
     Active Substance: VALGANCICLOVIR
     Indication: CASTLEMAN^S DISEASE
     Dosage: 450 MG, 2X/DAY
  9. DOXORUBICIN HCL [Suspect]
     Active Substance: DOXORUBICIN HYDROCHLORIDE
     Indication: KAPOSI^S SARCOMA
     Dosage: UNK, CYCLIC (4 CYCLES, REPEATED EVERY 21 DAYS)
  10. RITUXIMAB. [Suspect]
     Active Substance: RITUXIMAB
     Indication: CASTLEMAN^S DISEASE
     Dosage: UNK (4 CYCLES, REPEATED EVERY 21 DAYS)
  11. CYCLOPHOSPHAMIDE. [Suspect]
     Active Substance: CYCLOPHOSPHAMIDE
     Indication: KAPOSI^S SARCOMA
     Dosage: UNK, CYCLIC (4 CYCLES, REPEATED EVERY 21 DAYS)
  12. VALGANCICLOVIR. [Concomitant]
     Active Substance: VALGANCICLOVIR
     Indication: KAPOSI^S SARCOMA

REACTIONS (2)
  - Pneumonia [Unknown]
  - Neutropenia [Recovering/Resolving]
